FAERS Safety Report 4802987-1 (Version None)
Quarter: 2005Q4

REPORT INFORMATION
  Report Type: 
  Country: None (occurrence: None)
  Receive Date: 20051013
  Receipt Date: 20050927
  Transmission Date: 20060501
  Serious: Yes (Hospitalization, Other)
  Sender: FDA-Public Use
  Company Number: USA0508106806

PATIENT
  Age: 81 Year
  Sex: Female

DRUGS (10)
  1. FORTEO [Suspect]
     Indication: OSTEOPOROSIS
     Dosage: 20 UG DAY
     Dates: start: 20050501, end: 20050101
  2. PROTONIX [Concomitant]
  3. PROPOXYPHENE NAPSYLATE [Concomitant]
  4. ACETAMINOPHEN [Concomitant]
  5. AMBIEN [Concomitant]
  6. SYNTHROID [Concomitant]
  7. HYDROCHLOROTHIAZIDE [Concomitant]
  8. LOTENSIN [Concomitant]
  9. LIPITOR [Concomitant]
  10. NIFEDIPINE [Concomitant]

REACTIONS (2)
  - DEEP VEIN THROMBOSIS [None]
  - PHLEBITIS [None]
